FAERS Safety Report 4979448-2 (Version None)
Quarter: 2006Q2

REPORT INFORMATION
  Report Type: 
  Country: None (occurrence: None)
  Receive Date: 20060421
  Receipt Date: 20060411
  Transmission Date: 20061013
  Serious: Yes (Other)
  Sender: FDA-Public Use
  Company Number: JP-ABBOTT-06P-087-0330354-00

PATIENT
  Age: 91 Year
  Sex: Male
  Weight: 62 kg

DRUGS (28)
  1. SEVOFLURANE [Suspect]
     Indication: INDUCTION OF ANAESTHESIA
     Dosage: NOT REPORTED
  2. SEVOFLURANE [Suspect]
     Indication: MAINTENANCE OF ANAESTHESIA
     Dosage: NOT REPORTED
  3. SEVOFLURANE [Suspect]
     Dosage: NOT REPORTED
  4. SEVOFLURANE [Suspect]
     Dosage: NOT REPORTED
  5. ASPIRIN [Concomitant]
     Indication: DRUG USE FOR UNKNOWN INDICATION
  6. DIAZEPAM [Concomitant]
     Indication: PREMEDICATION
     Dosage: NOT REPORTED
  7. NITROGLYCERIN [Concomitant]
     Indication: DRUG USE FOR UNKNOWN INDICATION
     Dosage: NOT REPORTED
     Route: 042
  8. NICORANDIL [Concomitant]
     Indication: DRUG USE FOR UNKNOWN INDICATION
     Dosage: NOT REPORTED
     Route: 042
  9. MIDAZOLAM HCL [Concomitant]
     Indication: INDUCTION OF ANAESTHESIA
     Dosage: NOT REPORTED
  10. MIDAZOLAM HCL [Concomitant]
     Dosage: NOT REPORTED
  11. MIDAZOLAM HCL [Concomitant]
     Dosage: NOT REPORTED
  12. MIDAZOLAM HCL [Concomitant]
     Dosage: NOT REPORTED
  13. FENTANYL [Concomitant]
     Indication: INDUCTION OF ANAESTHESIA
     Dosage: NOT REPORTED
  14. FENTANYL [Concomitant]
     Indication: MAINTENANCE OF ANAESTHESIA
     Dosage: NOT REPORTED
  15. FENTANYL [Concomitant]
     Dosage: NOT REPORTED
  16. FENTANYL [Concomitant]
     Dosage: NOT REPORTED
  17. OXYGEN [Concomitant]
     Indication: INDUCTION OF ANAESTHESIA
     Dosage: NOT REPORTED
  18. OXYGEN [Concomitant]
     Indication: MAINTENANCE OF ANAESTHESIA
     Dosage: NOT REPORTED
  19. OXYGEN [Concomitant]
     Dosage: NOT REPORTED
  20. OXYGEN [Concomitant]
     Dosage: NOT REPORTED
  21. VERCURONIUM [Concomitant]
     Indication: MAINTENANCE OF ANAESTHESIA
     Dosage: NOT REPORTED
  22. VERCURONIUM [Concomitant]
     Dosage: NOT REPORTED
  23. VERCURONIUM [Concomitant]
     Dosage: NOT REPORTED
  24. VERCURONIUM [Concomitant]
     Dosage: NOT REPORTED
  25. 1% LIDOCAINE/ADRENALINE 1:200,000 [Concomitant]
     Indication: INFILTRATION ANAESTHESIA
  26. 2% LIDOCAINE/ADRENALINE 1:80,000 [Concomitant]
     Indication: INFILTRATION ANAESTHESIA
  27. LIDOCAINE 1% [Concomitant]
     Indication: INFILTRATION ANAESTHESIA
  28. BUTOPHANOL [Concomitant]
     Indication: DRUG USE FOR UNKNOWN INDICATION
     Route: 042

REACTIONS (3)
  - BLOOD PRESSURE DECREASED [None]
  - CARDIAC INDEX DECREASED [None]
  - SUPRAVENTRICULAR TACHYCARDIA [None]
